FAERS Safety Report 22089328 (Version 1)
Quarter: 2023Q1

REPORT INFORMATION
  Report Type: Spontaneous
  Country: CN (occurrence: CN)
  Receive Date: 20230313
  Receipt Date: 20230313
  Transmission Date: 20230418
  Serious: Yes (Hospitalization, Other)
  Sender: FDA-Public Use
  Company Number: CN-BAYER-2023A032262

PATIENT
  Age: 63 Year
  Sex: Female
  Weight: 60 kg

DRUGS (3)
  1. ULTRAVIST [Suspect]
     Active Substance: IOPROMIDE
     Indication: Angiocardiogram
     Dosage: 76.89 G, ONCE
     Route: 041
     Dates: start: 20230304, end: 20230304
  2. ULTRAVIST [Suspect]
     Active Substance: IOPROMIDE
     Indication: Chest discomfort
  3. SODIUM CHLORIDE [Concomitant]
     Active Substance: SODIUM CHLORIDE
     Indication: Vehicle solution use
     Dosage: 250 ML, ONCE
     Route: 041
     Dates: start: 20230304, end: 20230304

REACTIONS (6)
  - Anaphylactic shock [Recovering/Resolving]
  - Syncope [Recovered/Resolved]
  - Flushing [Recovering/Resolving]
  - Urinary incontinence [Recovering/Resolving]
  - Blood pressure increased [Recovering/Resolving]
  - Incorrect drug administration rate [None]

NARRATIVE: CASE EVENT DATE: 20230304
